FAERS Safety Report 5301479-3 (Version None)
Quarter: 2007Q2

REPORT INFORMATION
  Report Type: 
  Country: None (occurrence: None)
  Receive Date: 20070412
  Receipt Date: 20070327
  Transmission Date: 20071010
  Serious: Yes (Other)
  Sender: FDA-Public Use
  Company Number: 4286

PATIENT
  Age: 41 Year
  Sex: Female
  Weight: 98.8842 kg

DRUGS (6)
  1. AZATHIOPRINE [Suspect]
     Indication: CROHN'S DISEASE
     Dosage: 200 MG,QD;PO
     Route: 048
     Dates: start: 20031101
  2. KLOR-CON (POTASIUM CHLORIDE) [Concomitant]
  3. TRAMADOL HCL [Concomitant]
  4. PHENYTOIN [Concomitant]
  5. AMITRIPTYLINE HCL [Concomitant]
  6. BENADRYL [Concomitant]

REACTIONS (2)
  - NEUROPATHY PERIPHERAL [None]
  - URINE ARSENIC DECREASED [None]
